FAERS Safety Report 4804182-9 (Version None)
Quarter: 2005Q4

REPORT INFORMATION
  Report Type: 
  Country: None (occurrence: None)
  Receive Date: 20051018
  Receipt Date: 20051018
  Transmission Date: 20060501
  Serious: Yes (Other)
  Sender: FDA-Public Use
  Company Number: None

PATIENT
  Age: 50 Year
  Sex: Female
  Weight: 61.2 kg

DRUGS (2)
  1. VANCOMYCIN [Suspect]
     Indication: POSTOPERATIVE CARE
     Dosage: 1 GM IV Q 12H [1 DOSE]
     Route: 042
     Dates: start: 20051017
  2. LEVAQUIN [Concomitant]

REACTIONS (6)
  - ERYTHEMA [None]
  - FEELING ABNORMAL [None]
  - FEELING HOT [None]
  - INFUSION RELATED REACTION [None]
  - PARAESTHESIA [None]
  - RASH ERYTHEMATOUS [None]
